FAERS Safety Report 10564787 (Version 1)
Quarter: 2014Q4

REPORT INFORMATION
  Report Type: Spontaneous
  Country: GB (occurrence: GB)
  Receive Date: 20141105
  Receipt Date: 20141105
  Transmission Date: 20150529
  Serious: Yes (Hospitalization)
  Sender: FDA-Public Use
  Company Number: GB-ACCORD-026758

PATIENT
  Age: 81 Year
  Sex: Female

DRUGS (1)
  1. ESCITALOPRAM [Suspect]
     Active Substance: ESCITALOPRAM OXALATE
     Indication: PRODUCT USED FOR UNKNOWN INDICATION
     Dosage: INITIALLY GIVEN 5  MG THEN DOSE INCREASED TO 10 MG DAILY FROM UNKNOWN DATE.
     Route: 048
     Dates: start: 20140217

REACTIONS (3)
  - Hallucination [Unknown]
  - Abnormal behaviour [Unknown]
  - Anxiety [Unknown]

NARRATIVE: CASE EVENT DATE: 2014
